FAERS Safety Report 10218430 (Version 1)
Quarter: 2014Q2

REPORT INFORMATION
  Report Type: Spontaneous
  Country: GB (occurrence: GB)
  Receive Date: 20140605
  Receipt Date: 20140605
  Transmission Date: 20141212
  Serious: Yes (Life-Threatening)
  Sender: FDA-Public Use
  Company Number: GB-RANBAXY-2014RR-81874

PATIENT
  Age: 41 Year
  Sex: Male
  Weight: 105 kg

DRUGS (2)
  1. AMOXICILLIN/CLAVULANIC ACID [Suspect]
     Indication: ANTIBIOTIC PROPHYLAXIS
     Dosage: 1.2 G, UNK
     Route: 042
  2. ROCURONIUM [Suspect]
     Indication: GENERAL ANAESTHESIA
     Dosage: 70 MG
     Route: 042

REACTIONS (1)
  - Anaphylactic shock [Recovered/Resolved]
